FAERS Safety Report 4686350-2 (Version None)
Quarter: 2005Q2

REPORT INFORMATION
  Report Type: 
  Country: None (occurrence: None)
  Receive Date: 20050606
  Receipt Date: 20050524
  Transmission Date: 20051028
  Serious: Yes (Hospitalization)
  Sender: FDA-Public Use
  Company Number: 2005077662

PATIENT
  Age: 18 Month
  Sex: Male

DRUGS (2)
  1. HYDROCORTISONE SODIUM SUCCINATE [Suspect]
     Indication: ASTHMA
     Dosage: 450 MG (300 MG, 2-HOUR DRIP INFUSION), INTRAVENOUS
     Route: 042
  2. AMINOPHYLLIN [Suspect]
     Indication: ASTHMA
     Dosage: 250 MG (2-HOUR DRIP INFUSION), INTRAVENOUS
     Route: 042

REACTIONS (11)
  - BLOOD AMYLASE INCREASED [None]
  - BLOOD CHLORIDE DECREASED [None]
  - BLOOD CREATININE DECREASED [None]
  - BLOOD GLUCOSE INCREASED [None]
  - BOWEL SOUNDS ABNORMAL [None]
  - IRRITABILITY [None]
  - PANCREATITIS [None]
  - PYREXIA [None]
  - TACHYCARDIA [None]
  - WHEEZING [None]
  - WHITE BLOOD CELL COUNT INCREASED [None]
